FAERS Safety Report 7571712-6 (Version None)
Quarter: 2011Q2

REPORT INFORMATION
  Report Type: 
  Country: None (occurrence: None)
  Receive Date: 20110624
  Receipt Date: 20110621
  Transmission Date: 20111010
  Serious: Yes (Life-Threatening, Hospitalization)
  Sender: FDA-Public Use
  Company Number: FR-B.I. PHARMACEUTICALS,INC./RIDGEFIELD-2011-FF-00196FF

PATIENT
  Age: 70 Year
  Sex: Male

DRUGS (2)
  1. PLAVIX [Suspect]
  2. PRADAXA [Suspect]
     Indication: KNEE ARTHROPLASTY
     Dosage: 220 MG
     Route: 048
     Dates: start: 20110101

REACTIONS (7)
  - SUBDURAL HAEMATOMA [None]
  - COMA [None]
  - CEREBRAL HAEMATOMA [None]
  - SENSORIMOTOR DISORDER [None]
  - FALL [None]
  - GAIT DISTURBANCE [None]
  - APHASIA [None]
